FAERS Safety Report 9814510 (Version 1)
Quarter: 2014Q1

REPORT INFORMATION
  Report Type: Spontaneous
  Country: US (occurrence: US)
  Receive Date: 20140113
  Receipt Date: 20140113
  Transmission Date: 20141002
  Serious: No
  Sender: FDA-Public Use
  Company Number: US-BIOGENIDEC-2013BI110252

PATIENT
  Age: 34 Year
  Sex: Male

DRUGS (7)
  1. TECFIDERA [Suspect]
     Indication: MULTIPLE SCLEROSIS
     Route: 048
     Dates: start: 20131007
  2. TECFIDERA [Suspect]
     Indication: MULTIPLE SCLEROSIS
     Route: 048
     Dates: start: 20131022
  3. ALLEGRA-D [Concomitant]
  4. MELOXICAM [Concomitant]
  5. ZANTAC [Concomitant]
  6. PROTOPIC [Concomitant]
  7. CVS VITAMIN D [Concomitant]

REACTIONS (5)
  - Gastric disorder [Recovered/Resolved]
  - Nausea [Unknown]
  - Vomiting [Unknown]
  - Abdominal pain upper [Unknown]
  - Flushing [Unknown]
